FAERS Safety Report 8258266-6 (Version None)
Quarter: 2012Q2

REPORT INFORMATION
  Report Type: 
  Country: None (occurrence: None)
  Receive Date: 20120403
  Receipt Date: 20120403
  Transmission Date: 20120825
  Serious: No
  Sender: FDA-Public Use
  Company Number: None

PATIENT
  Age: 63 Year
  Sex: Male
  Weight: 90.9 kg

DRUGS (2)
  1. COUMADIN [Suspect]
     Indication: DEEP VEIN THROMBOSIS
     Dosage: COUMADIN 6.5MG DAILY BY MOUTH
     Route: 048
     Dates: start: 20100301
  2. FENOFIBRATE [Suspect]
     Indication: HYPERLIPIDAEMIA
     Dosage: FENOFIBRATE 200MG DAILY BY MOUTH
     Route: 048
     Dates: start: 20120119

REACTIONS (1)
  - INTERNATIONAL NORMALISED RATIO INCREASED [None]
